FAERS Safety Report 7948337-3 (Version None)
Quarter: 2011Q4

REPORT INFORMATION
  Report Type: 
  Country: None (occurrence: None)
  Receive Date: 20111130
  Receipt Date: 20111118
  Transmission Date: 20120403
  Serious: Yes (Other)
  Sender: FDA-Public Use
  Company Number: FR-UCBSA-046237

PATIENT
  Age: 91 Year
  Sex: Female

DRUGS (12)
  1. NEXIUM [Concomitant]
     Dosage: 40 MG
  2. MIDAZOLAM HCL [Concomitant]
     Dosage: 1 SUBCUTANEOUS INJECTION OF 2.5 MG
     Route: 058
     Dates: start: 20111021
  3. FLAGYL [Concomitant]
     Dates: start: 20111023
  4. POLARAMINE [Concomitant]
     Indication: RASH
     Dosage: ONE AMPOULE
     Dates: start: 20111023
  5. BACTRIM [Suspect]
     Indication: INFECTION
     Dosage: 1 TABLET TWICE DAILY
     Route: 048
     Dates: start: 20111014, end: 20111021
  6. FLUCONAZOLE [Suspect]
     Indication: FUNGAL INFECTION
     Route: 048
     Dates: start: 20111018, end: 20111023
  7. KEPPRA [Suspect]
     Indication: EPILEPSY
     Route: 048
     Dates: start: 20111011, end: 20111023
  8. ENTOCORT EC [Concomitant]
     Dosage: 3 MG
  9. POTASSIUM CHLORIDE [Concomitant]
  10. SOLU-MEDROL [Concomitant]
     Indication: RASH
     Dosage: 60MG DAILY
     Dates: start: 20111023
  11. CALCIDOSE VITAMINE D [Concomitant]
  12. ROCEPHIN [Concomitant]
     Dates: start: 20111023

REACTIONS (7)
  - MALAISE [None]
  - ANAPHYLACTIC REACTION [None]
  - LYMPHOPENIA [None]
  - HYPONATRAEMIA [None]
  - RENAL FAILURE ACUTE [None]
  - SYSTEMIC INFLAMMATORY RESPONSE SYNDROME [None]
  - EOSINOPHILIA [None]
